FAERS Safety Report 4439589-5 (Version None)
Quarter: 2004Q3

REPORT INFORMATION
  Report Type: 
  Country: None (occurrence: None)
  Receive Date: 20040830
  Receipt Date: 20040823
  Transmission Date: 20050211
  Serious: Yes (Hospitalization)
  Sender: FDA-Public Use
  Company Number: 2004-08-1365

PATIENT
  Age: 54 Year
  Sex: Male
  Weight: 118.8424 kg

DRUGS (10)
  1. PEG-INTRON [Suspect]
     Indication: HEPATITIS C
     Dosage: 150 MCG SUBCUTANEOUS
     Route: 058
     Dates: start: 20040621, end: 20040813
  2. REBETOL [Suspect]
     Indication: HEPATITIS C
     Dosage: 800 MG QD ORAL
     Route: 048
     Dates: start: 20040621, end: 20040813
  3. VIOXX [Concomitant]
  4. HYZAAR [Concomitant]
  5. ALBUTEROL [Concomitant]
  6. FLOVENT [Concomitant]
  7. LEXAPRO [Concomitant]
  8. DOXEPIN HCL [Concomitant]
  9. XANAX [Concomitant]
  10. AMBIEN [Concomitant]

REACTIONS (15)
  - APHASIA [None]
  - APRAXIA [None]
  - CEREBRAL INFARCTION [None]
  - CEREBROVASCULAR ACCIDENT [None]
  - CONFUSIONAL STATE [None]
  - DIVERTICULUM INTESTINAL HAEMORRHAGIC [None]
  - ECHOCARDIOGRAM ABNORMAL [None]
  - EJECTION FRACTION DECREASED [None]
  - EMBOLISM [None]
  - HAEMOGLOBIN DECREASED [None]
  - HEADACHE [None]
  - NAUSEA [None]
  - PLATELET COUNT DECREASED [None]
  - SPEECH DISORDER [None]
  - TRICUSPID VALVE INCOMPETENCE [None]
